FAERS Safety Report 13390251 (Version 2)
Quarter: 2017Q2

REPORT INFORMATION
  Report Type: Spontaneous
  Country: FR (occurrence: FR)
  Receive Date: 20170331
  Receipt Date: 20170410
  Transmission Date: 20170830
  Serious: Yes (Other)
  Sender: FDA-Public Use
  Company Number: PHHY2017FR045997

PATIENT
  Age: 54 Year
  Sex: Male

DRUGS (3)
  1. VOTRIENT [Suspect]
     Active Substance: PAZOPANIB HYDROCHLORIDE
     Indication: RENAL CANCER
     Dosage: UNK
     Route: 065
     Dates: start: 20150830, end: 201510
  2. SOLUPRED [Concomitant]
     Active Substance: PREDNISOLONE
     Indication: PRODUCT USED FOR UNKNOWN INDICATION
     Dosage: 60 MG, UNK
     Route: 065
  3. VOTRIENT [Suspect]
     Active Substance: PAZOPANIB HYDROCHLORIDE
     Dosage: UNK
     Route: 065
     Dates: start: 20151123, end: 2016

REACTIONS (5)
  - Renal cancer [Unknown]
  - Malignant neoplasm progression [Unknown]
  - Eschar [Recovered/Resolved]
  - Spinal cord compression [Unknown]
  - Compression fracture [Unknown]

NARRATIVE: CASE EVENT DATE: 201510
